FAERS Safety Report 9369426 (Version 1)
Quarter: 2013Q2

REPORT INFORMATION
  Report Type: Spontaneous
  Country: US (occurrence: US)
  Receive Date: 20130626
  Receipt Date: 20130626
  Transmission Date: 20140414
  Serious: No
  Sender: FDA-Public Use
  Company Number: US-009507513-1306USA010781

PATIENT
  Age: 62 Year
  Sex: Male
  Weight: 84.81 kg

DRUGS (3)
  1. PEGINTRON [Suspect]
     Dosage: 120 MICROGRAM, QW, REDIPEN, (120MCG/0.5ML)
     Route: 058
  2. RIBAPAK [Suspect]
     Dosage: 600/DAY
     Route: 048
  3. TELAPREVIR [Suspect]
     Route: 048

REACTIONS (1)
  - Rash [Unknown]
